FAERS Safety Report 4562775-0 (Version None)
Quarter: 2005Q1

REPORT INFORMATION
  Report Type: 
  Country: None (occurrence: None)
  Receive Date: 20050121
  Receipt Date: 20050112
  Transmission Date: 20050727
  Serious: Yes (Hospitalization)
  Sender: FDA-Public Use
  Company Number: 2004SE05860

PATIENT
  Age: 78 Year
  Sex: Female

DRUGS (1)
  1. BLOPRESS [Suspect]
     Indication: HYPERTENSION
     Dosage: 4-8 MG
     Dates: start: 20010101, end: 20041001

REACTIONS (2)
  - COUGH [None]
  - NASOPHARYNGITIS [None]
